FAERS Safety Report 15748964 (Version 1)
Quarter: 2018Q4

REPORT INFORMATION
  Report Type: Spontaneous
  Country: US (occurrence: US)
  Receive Date: 20181221
  Receipt Date: 20181221
  Transmission Date: 20190205
  Serious: Yes (Other)
  Sender: FDA-Public Use
  Company Number: US-SAMSUNG BIOEPIS-SB-2018-16643

PATIENT

DRUGS (8)
  1. PREDNISONE. [Concomitant]
     Active Substance: PREDNISONE
     Indication: DIARRHOEA
  2. INFLIXIMAB [Suspect]
     Active Substance: INFLIXIMAB
     Indication: DIARRHOEA
  3. VEDOLIZUMAB [Concomitant]
     Active Substance: VEDOLIZUMAB
     Indication: DIARRHOEA
  4. PREDNISONE. [Concomitant]
     Active Substance: PREDNISONE
     Indication: AUTOIMMUNE COLITIS
     Dosage: UNKNOWN
     Route: 048
  5. VEDOLIZUMAB [Concomitant]
     Active Substance: VEDOLIZUMAB
     Indication: AUTOIMMUNE COLITIS
     Dosage: UNKNOWN
     Route: 065
  6. INFLIXIMAB [Suspect]
     Active Substance: INFLIXIMAB
     Indication: AUTOIMMUNE COLITIS
     Dosage: UNKNOWN
     Route: 065
  7. METHYLPREDNISOLONE. [Concomitant]
     Active Substance: METHYLPREDNISOLONE
     Indication: AUTOIMMUNE COLITIS
     Dosage: UNKNOWN
     Route: 042
  8. METHYLPREDNISOLONE. [Concomitant]
     Active Substance: METHYLPREDNISOLONE
     Indication: DIARRHOEA

REACTIONS (3)
  - Colitis microscopic [Unknown]
  - Off label use [Unknown]
  - Drug ineffective for unapproved indication [Unknown]
